FAERS Safety Report 7358969-1 (Version None)
Quarter: 2011Q1

REPORT INFORMATION
  Report Type: 
  Country: None (occurrence: None)
  Receive Date: 20110317
  Receipt Date: 20110308
  Transmission Date: 20110831
  Serious: Yes (Hospitalization)
  Sender: FDA-Public Use
  Company Number: US-ASTRAZENECA-2011SE12813

PATIENT
  Age: 50 Year
  Sex: Male
  Weight: 98.3 kg

DRUGS (10)
  1. SEROQUEL [Suspect]
     Route: 048
     Dates: start: 20100914
  2. INVESTIGATIONAL DRUG [Suspect]
     Indication: BIPOLAR DISORDER
     Route: 048
     Dates: start: 20100726, end: 20100726
  3. INVESTIGATIONAL DRUG [Suspect]
     Route: 048
     Dates: start: 20100728, end: 20100804
  4. LAXATIVES [Concomitant]
     Indication: CONSTIPATION
  5. SEROQUEL [Suspect]
     Indication: BIPOLAR DISORDER
     Route: 048
     Dates: start: 20090101, end: 20100720
  6. INVESTIGATIONAL DRUG [Suspect]
     Route: 048
     Dates: start: 20100805, end: 20100808
  7. IBUPROFEN [Concomitant]
     Indication: BACK PAIN
     Dates: start: 20100720
  8. INVESTIGATIONAL DRUG [Suspect]
     Route: 048
     Dates: start: 20100727, end: 20100727
  9. INVESTIGATIONAL DRUG [Suspect]
     Route: 048
     Dates: start: 20100809, end: 20100914
  10. TYLENOL-500 [Concomitant]
     Indication: BACK PAIN
     Dates: start: 20100720

REACTIONS (8)
  - WHITE BLOOD CELL COUNT INCREASED [None]
  - CONSTIPATION [None]
  - LARGE INTESTINAL OBSTRUCTION [None]
  - MALNUTRITION [None]
  - ISCHAEMIA [None]
  - DIVERTICULITIS [None]
  - PLATELET COUNT INCREASED [None]
  - PYREXIA [None]
